FAERS Safety Report 13678898 (Version 2)
Quarter: 2017Q2

REPORT INFORMATION
  Report Type: Spontaneous
  Country: US (occurrence: US)
  Receive Date: 20170622
  Receipt Date: 20170626
  Transmission Date: 20170830
  Serious: No
  Sender: FDA-Public Use
  Company Number: US-GILEAD-2017-0278578

PATIENT
  Sex: Female
  Weight: 67.57 kg

DRUGS (6)
  1. HARVONI [Suspect]
     Active Substance: LEDIPASVIR\SOFOSBUVIR
     Indication: HEPATITIS C
     Dosage: UNK
     Route: 048
  2. DIPHENHYDRAMINE. [Concomitant]
     Active Substance: DIPHENHYDRAMINE
  3. TURMERIC                           /01079602/ [Concomitant]
     Active Substance: HERBALS\TURMERIC
  4. MILK THISTLE PLUS                  /08512201/ [Concomitant]
  5. AMITIZA [Concomitant]
     Active Substance: LUBIPROSTONE
  6. ONE A DAY                          /02262701/ [Concomitant]
     Active Substance: VITAMINS

REACTIONS (4)
  - Lymph node pain [Unknown]
  - Paraesthesia [Unknown]
  - Lymphadenopathy [Unknown]
  - Arthralgia [Unknown]
